FAERS Safety Report 14242672 (Version 3)
Quarter: 2017Q4

REPORT INFORMATION
  Report Type: Spontaneous
  Country: CH (occurrence: CH)
  Receive Date: 20171201
  Receipt Date: 20171214
  Transmission Date: 20180321
  Serious: Yes (Other)
  Sender: FDA-Public Use
  Company Number: CH-ALKABELLO-2017AA003946

PATIENT
  Age: 34 Year
  Sex: Male

DRUGS (1)
  1. ACARIZAX LYOPHILISAT ZUM EINNEHMEN [Suspect]
     Active Substance: DERMATOPHAGOIDES FARINAE\DERMATOPHAGOIDES PTERONYSSINUS
     Indication: RHINITIS ALLERGIC
     Dosage: DOSE UNIT:12 SQ-HOUSE DUST MITE
     Dates: start: 20170824, end: 20171117

REACTIONS (2)
  - Eosinophilic oesophagitis [Unknown]
  - Duodenal ulcer [Unknown]

NARRATIVE: CASE EVENT DATE: 2017
